FAERS Safety Report 10150986 (Version 1)
Quarter: 2014Q2

REPORT INFORMATION
  Report Type: Spontaneous
  Country: US (occurrence: US)
  Receive Date: 20140502
  Receipt Date: 20140502
  Transmission Date: 20141212
  Serious: Yes (Hospitalization, Other)
  Sender: FDA-Public Use
  Company Number: US-PFIZER INC-2014117551

PATIENT
  Age: 32 Year
  Sex: Female

DRUGS (1)
  1. LINCOMYCIN HCL [Suspect]
     Indication: UPPER RESPIRATORY TRACT INFECTION
     Dosage: UNK
     Route: 048

REACTIONS (1)
  - Colitis ulcerative [Recovered/Resolved]
